FAERS Safety Report 8482554-1 (Version None)
Quarter: 2012Q3

REPORT INFORMATION
  Report Type: 
  Country: None (occurrence: None)
  Receive Date: 20120702
  Receipt Date: 20120621
  Transmission Date: 20120928
  Serious: Yes (Hospitalization, Other)
  Sender: FDA-Public Use
  Company Number: CA-JNJFOC-20120612900

PATIENT

DRUGS (6)
  1. DONEPEZIL HCL [Suspect]
     Indication: CHRONIC OBSTRUCTIVE PULMONARY DISEASE
     Route: 065
  2. DONEPEZIL HCL [Suspect]
     Indication: DEMENTIA
     Route: 065
  3. RIVASTIGMINE [Suspect]
     Indication: DEMENTIA
     Route: 065
  4. RIVASTIGMINE [Suspect]
     Indication: CHRONIC OBSTRUCTIVE PULMONARY DISEASE
     Route: 065
  5. GALANTAMINE HYDROBROMIDE [Suspect]
     Indication: CHRONIC OBSTRUCTIVE PULMONARY DISEASE
     Route: 065
  6. GALANTAMINE HYDROBROMIDE [Suspect]
     Indication: DEMENTIA
     Route: 065

REACTIONS (9)
  - DECUBITUS ULCER [None]
  - FAECAL INCONTINENCE [None]
  - RESPIRATORY DISORDER [None]
  - DELIRIUM [None]
  - HIP FRACTURE [None]
  - CHRONIC OBSTRUCTIVE PULMONARY DISEASE [None]
  - FALL [None]
  - URINARY INCONTINENCE [None]
  - PNEUMONIA ASPIRATION [None]
